FAERS Safety Report 9322915 (Version 3)
Quarter: 2014Q1

REPORT INFORMATION
  Report Type: Spontaneous
  Country: US (occurrence: US)
  Receive Date: 20130601
  Receipt Date: 20140107
  Transmission Date: 20141002
  Serious: Yes (Hospitalization, Disabling, Other)
  Sender: FDA-Public Use
  Company Number: US-ASTRAZENECA-2013SE38638

PATIENT
  Age: 460 Month
  Sex: Male

DRUGS (16)
  1. NEXIUM [Suspect]
     Indication: GASTROOESOPHAGEAL REFLUX DISEASE
     Dosage: 20 MG TO 40 MG DAILY
     Route: 048
     Dates: start: 2004, end: 201205
  2. NEXIUM [Suspect]
     Indication: GASTROOESOPHAGEAL REFLUX DISEASE
     Route: 048
     Dates: start: 20050202
  3. PROTONIX [Concomitant]
     Indication: GASTROOESOPHAGEAL REFLUX DISEASE
     Dates: start: 2004, end: 201205
  4. TUMS [Concomitant]
     Indication: DYSPEPSIA
     Dates: start: 1990, end: 2003
  5. ROLAIDS [Concomitant]
     Indication: DYSPEPSIA
     Dates: start: 1990, end: 2003
  6. LANTUS [Concomitant]
  7. MULTIVITAMIN [Concomitant]
  8. PANCREAS [Concomitant]
  9. METFORMIN [Concomitant]
  10. ACIPHEX [Concomitant]
  11. NOVOLOG [Concomitant]
  12. CREON [Concomitant]
  13. LIPRAM [Concomitant]
     Dosage: 1 C PO TID
     Route: 048
     Dates: start: 20060310
  14. CLINDAMYCIN [Concomitant]
     Route: 048
     Dates: start: 20080728
  15. CEPHALEXIN [Concomitant]
     Route: 048
     Dates: start: 20080728
  16. LIPITOR [Concomitant]
     Route: 048
     Dates: start: 20080120

REACTIONS (11)
  - Joint injury [Unknown]
  - Intervertebral disc protrusion [Unknown]
  - Thoracic vertebral fracture [Unknown]
  - Meningitis [Unknown]
  - Osteoporosis [Unknown]
  - Bone disorder [Unknown]
  - Ligament sprain [Unknown]
  - Crohn^s disease [Unknown]
  - Androgen deficiency [Unknown]
  - Vitamin D deficiency [Unknown]
  - Back pain [Unknown]
